FAERS Safety Report 21922354 (Version 5)
Quarter: 2025Q2

REPORT INFORMATION
  Report Type: Report from Study
  Country: DE (occurrence: DE)
  Receive Date: 20230128
  Receipt Date: 20250521
  Transmission Date: 20250716
  Serious: Yes (Life-Threatening, Congenital Anomaly, Other)
  Sender: AUROBINDO
  Company Number: DE-ARISTO PHARMA-IBUP202301023

PATIENT
  Sex: Female
  Weight: 3 kg

DRUGS (21)
  1. IBUPROFEN [Suspect]
     Active Substance: IBUPROFEN
     Indication: Patent ductus arteriosus
     Route: 065
  2. MEROPENEM [Suspect]
     Active Substance: MEROPENEM
     Indication: Device related sepsis
     Route: 065
  3. MIDAZOLAM [Suspect]
     Active Substance: MIDAZOLAM
     Indication: Product used for unknown indication
     Route: 042
  4. SILDENAFIL [Suspect]
     Active Substance: SILDENAFIL
     Indication: Pulmonary hypertension
     Route: 048
  5. SILDENAFIL [Suspect]
     Active Substance: SILDENAFIL
     Route: 042
  6. CISATRACURIUM [Suspect]
     Active Substance: CISATRACURIUM
     Indication: Product used for unknown indication
     Route: 042
  7. INDOMETHACIN [Suspect]
     Active Substance: INDOMETHACIN
     Indication: Patent ductus arteriosus
     Route: 065
  8. LEVOSIMENDAN [Suspect]
     Active Substance: LEVOSIMENDAN
     Indication: Pulmonary hypertension
     Route: 042
  9. MACITENTAN [Suspect]
     Active Substance: MACITENTAN
     Indication: Pulmonary hypertension
     Dosage: 2 MILLIGRAM, ONCE A DAY
     Route: 048
  10. MACITENTAN [Suspect]
     Active Substance: MACITENTAN
     Route: 048
  11. MILRINONE [Suspect]
     Active Substance: MILRINONE
     Indication: Pulmonary hypertension
     Route: 042
  12. MORPHINE [Suspect]
     Active Substance: MORPHINE
     Indication: Product used for unknown indication
     Route: 042
  13. NOREPINEPHRINE [Suspect]
     Active Substance: NOREPINEPHRINE
     Indication: Pulmonary hypertension
     Route: 042
  14. ROCURONIUM [Suspect]
     Active Substance: ROCURONIUM BROMIDE
     Indication: Product used for unknown indication
     Route: 042
  15. SPIRONOLACTONE [Suspect]
     Active Substance: SPIRONOLACTONE
     Indication: Product used for unknown indication
     Dosage: 10 MILLIGRAM, ONCE A DAY
     Route: 048
  16. VANCOMYCIN [Suspect]
     Active Substance: VANCOMYCIN
     Indication: Device related sepsis
     Route: 065
  17. DEXAMETHASONE [Concomitant]
     Active Substance: DEXAMETHASONE
     Indication: Product used for unknown indication
     Route: 042
  18. NITRIC OXIDE [Concomitant]
     Active Substance: NITRIC OXIDE
     Indication: Pulmonary hypertension
     Route: 065
  19. SILDENAFIL [Concomitant]
     Active Substance: SILDENAFIL
     Indication: Pulmonary hypertension
     Dosage: 3.1 MILLIGRAM/KILOGRAM, ONCE A DAY
     Route: 042
  20. SELEXIPAG [Concomitant]
     Active Substance: SELEXIPAG
     Indication: Product used for unknown indication
     Dosage: 50 MICROGRAM, TWO TIMES A DAY
     Route: 065
  21. EPINEPHRINE [Concomitant]
     Active Substance: EPINEPHRINE
     Indication: Product used for unknown indication
     Route: 042

REACTIONS (15)
  - Drug ineffective [Recovered/Resolved]
  - Patent ductus arteriosus [Unknown]
  - Respiratory failure [Unknown]
  - Pulmonary hypertensive crisis [Recovered/Resolved]
  - Bronchopulmonary dysplasia [Unknown]
  - Device related sepsis [Unknown]
  - Therapy non-responder [Unknown]
  - Dysphagia [Unknown]
  - Neurodevelopmental disorder [Unknown]
  - Pallor [Unknown]
  - Lethargy [Unknown]
  - Upper respiratory tract infection [Unknown]
  - Acidosis [Unknown]
  - Heart valve incompetence [Unknown]
  - Off label use [Unknown]
